FAERS Safety Report 9701368 (Version 1)
Quarter: 2013Q4

REPORT INFORMATION
  Report Type: Spontaneous
  Country: US (occurrence: US)
  Receive Date: 20131121
  Receipt Date: 20131121
  Transmission Date: 20140711
  Serious: No
  Sender: FDA-Public Use
  Company Number: US-GILEAD-2008-0016849

PATIENT
  Sex: Female
  Weight: 45.36 kg

DRUGS (16)
  1. LETAIRIS [Suspect]
     Indication: PULMONARY ARTERIAL HYPERTENSION
     Route: 048
     Dates: start: 20070717
  2. REVATIO [Concomitant]
     Route: 048
  3. TRIAMTERENE/HCTZ [Concomitant]
     Dosage: AS DIRECTED
     Route: 048
  4. ACTONEL [Concomitant]
     Route: 048
  5. LEXAPRO [Concomitant]
     Route: 048
  6. QUININE SULFATE [Concomitant]
     Dosage: PRN
     Route: 048
  7. ALBUTEROL [Concomitant]
     Dosage: AS DIRECTED
     Route: 055
  8. ASPIRIN [Concomitant]
     Route: 048
  9. RESTASIS [Concomitant]
     Route: 047
  10. TIMOPTIC XE [Concomitant]
     Route: 047
  11. MURO 128 [Concomitant]
     Dosage: AS DIRECTED
     Route: 047
  12. NEXIUM [Concomitant]
     Route: 048
  13. VITAMIN C [Concomitant]
     Route: 048
  14. B COMPLEX [Concomitant]
     Route: 048
  15. CALCIUM [Concomitant]
     Route: 048
  16. GLUCOSAMINE/CHONDROTIN [Concomitant]
     Route: 048

REACTIONS (1)
  - Nasal congestion [Unknown]
